FAERS Safety Report 11223426 (Version 1)
Quarter: 2015Q2

REPORT INFORMATION
  Report Type: Other
  Country: BR (occurrence: BR)
  Receive Date: 20150628
  Receipt Date: 20150628
  Transmission Date: 20150821
  Serious: Yes (Hospitalization)
  Sender: FDA-Public Use
  Company Number: BR-DEXPHARM-20150528

PATIENT
  Age: 22 Year
  Sex: Male

DRUGS (2)
  1. VALPROIC ACID. [Concomitant]
     Active Substance: VALPROIC ACID
     Indication: SEIZURE
     Route: 048
  2. OMEPRAZOLE. [Suspect]
     Active Substance: OMEPRAZOLE
     Indication: DYSPEPSIA
     Route: 048

REACTIONS (3)
  - Hypomagnesaemia [Recovered/Resolved]
  - Major depression [Recovering/Resolving]
  - Primary hypoparathyroidism [Recovering/Resolving]
